FAERS Safety Report 21027694 (Version 1)
Quarter: 2022Q2

REPORT INFORMATION
  Report Type: Spontaneous
  Country: US (occurrence: None)
  Receive Date: 20220630
  Receipt Date: 20220630
  Transmission Date: 20220721
  Serious: Yes (Hospitalization)
  Sender: FDA-Public Use
  Company Number: None

PATIENT
  Age: 75 Year
  Sex: Male
  Weight: 65.8 kg

DRUGS (5)
  1. RADIUM RA-223 DICHLORIDE [Suspect]
     Active Substance: RADIUM RA-223 DICHLORIDE
     Dates: end: 20220617
  2. Extended Release Morphine [Concomitant]
  3. LUPRON [Concomitant]
     Active Substance: LEUPROLIDE ACETATE
  4. OXYCODONE [Concomitant]
     Active Substance: OXYCODONE
  5. ZOMETA [Concomitant]
     Active Substance: ZOLEDRONIC ACID

REACTIONS (6)
  - Muscular weakness [None]
  - Loss of personal independence in daily activities [None]
  - Back pain [None]
  - Pain in extremity [None]
  - Inadequate analgesia [None]
  - Bone marrow disorder [None]

NARRATIVE: CASE EVENT DATE: 20220627
